FAERS Safety Report 16860031 (Version 1)
Quarter: 2019Q3

REPORT INFORMATION
  Report Type: Spontaneous
  Country: PL (occurrence: PL)
  Receive Date: 20190927
  Receipt Date: 20190927
  Transmission Date: 20191005
  Serious: Yes (Death, Life-Threatening, Disabling, Other)
  Sender: FDA-Public Use
  Company Number: PL-MYLANLABS-2019M1090237

PATIENT
  Age: 67 Year
  Sex: Female
  Weight: 70 kg

DRUGS (41)
  1. VANCOMYCIN [Suspect]
     Active Substance: VANCOMYCIN
     Dosage: 1 GRAM, QD
     Route: 048
     Dates: start: 20181028, end: 20181109
  2. IMIPENEM/CILASTATIN KABI /00820501/ [Suspect]
     Active Substance: CILASTATIN SODIUM\IMIPENEM
     Indication: PRODUCT USED FOR UNKNOWN INDICATION
     Dosage: 4 GRAM, QD
     Route: 042
     Dates: start: 20181117, end: 20181125
  3. FUROSEMID                          /00032601/ [Concomitant]
     Active Substance: FUROSEMIDE
     Dosage: 40 MILLIGRAM, QD
     Route: 042
     Dates: start: 20181024, end: 20181101
  4. SODIUM BICARBONATE. [Concomitant]
     Active Substance: SODIUM BICARBONATE
     Dosage: 100 MILLIGRAM
     Route: 042
     Dates: start: 20181115, end: 20181118
  5. DIGOXIN. [Concomitant]
     Active Substance: DIGOXIN
     Dosage: 1 GRAM
     Route: 042
     Dates: start: 20181015, end: 20181015
  6. VANCOMYCIN [Suspect]
     Active Substance: VANCOMYCIN
     Dosage: 2 GRAM, QD
     Route: 042
     Dates: start: 20181124, end: 20181125
  7. GENSULIN R [Suspect]
     Active Substance: INSULIN HUMAN
     Indication: DIABETES MELLITUS
     Dosage: UNK
     Route: 042
     Dates: start: 20181025, end: 20181115
  8. CORHYDRON                          /00028601/ [Concomitant]
     Dosage: 400 MILLIGRAM, QD
     Route: 042
     Dates: start: 20181116, end: 20181121
  9. MEMOTROPIL [Concomitant]
     Active Substance: PIRACETAM
     Dosage: 2.4 GRAM, QD
     Route: 042
     Dates: start: 20181116, end: 20181125
  10. MORPHINE [Suspect]
     Active Substance: MORPHINE
     Dosage: DOSAGE: 60 MG+5 MG/H FOR 17 HOURS=145 MG/DAY
     Route: 042
     Dates: start: 20181124, end: 20181125
  11. LEVONOR 1 MG/ML [Concomitant]
     Dosage: DATE OF DRUG ADMINISTRATION AND DOSAGE:  1.4 MG/HOUR FROM 12/10/2018 TO 16/10/2018 4 MG/HOUR FROM 16
     Route: 042
  12. HEPA-MERZ                          /01390204/ [Concomitant]
     Active Substance: ORNITHINE ASPARTATE
     Dosage: 20 MILLIGRAM, QD
     Route: 041
     Dates: start: 20181116, end: 20181125
  13. PARACETAMOL [Concomitant]
     Active Substance: ACETAMINOPHEN
     Dosage: 1 GRAM, QD
     Route: 042
     Dates: start: 20181015, end: 20181015
  14. AMANTIX [Concomitant]
     Dosage: 500 ML (5H INFUSION)
     Route: 042
     Dates: start: 20181115, end: 20181117
  15. VANCOMYCIN [Suspect]
     Active Substance: VANCOMYCIN
     Indication: STENOTROPHOMONAS INFECTION
     Dosage: 1.4 MILLIGRAM, QH
     Route: 042
     Dates: start: 20181012, end: 20181016
  16. VANCOMYCIN [Suspect]
     Active Substance: VANCOMYCIN
     Indication: CLOSTRIDIUM DIFFICILE INFECTION
     Dosage: 1.5 GRAM, QD
     Route: 048
     Dates: start: 20181027, end: 20181028
  17. METOCARD ZK [Concomitant]
     Active Substance: METOPROLOL TARTRATE
     Dosage: 95 MILLIGRAM
     Route: 048
     Dates: start: 20181016, end: 20181115
  18. DEXAVEN [Concomitant]
     Active Substance: DEXAMETHASONE
     Dosage: 8 MILLIGRAM, QD
     Route: 042
     Dates: start: 20181122, end: 20181125
  19. VANCOMYCIN [Suspect]
     Active Substance: VANCOMYCIN
     Indication: KLEBSIELLA INFECTION
     Dosage: 15/10/2018-21/10/2018 WITH BREAKS
     Route: 042
     Dates: start: 20181015, end: 20181121
  20. GENSULIN R [Suspect]
     Active Substance: INSULIN HUMAN
     Dosage: CONTINOUS INFUSION OF 15 UNITS GIVEN WITH 2X500 ML OF 10% GLUCOSE.
     Route: 042
     Dates: start: 20181125
  21. IPP                                /00661201/ [Concomitant]
     Dosage: 40 MILLIGRAM, QD
     Route: 042
     Dates: start: 20181015, end: 20181115
  22. KWETAPLEX [Concomitant]
     Active Substance: QUETIAPINE FUMARATE
     Dosage: 50 MILLIGRAM, QD
     Route: 048
     Dates: start: 20181017, end: 20181101
  23. CORDARONE [Concomitant]
     Active Substance: AMIODARONE HYDROCHLORIDE
     Dosage: 900 MILLIGRAM, QD
     Route: 041
     Dates: start: 20181115, end: 20181118
  24. VITACON                            /00032401/ [Concomitant]
     Dosage: DOSE: 2G/200 ML
     Route: 042
     Dates: start: 20181117, end: 20181117
  25. VANCOMYCIN [Suspect]
     Active Substance: VANCOMYCIN
     Indication: SERRATIA INFECTION
     Dosage: 3.2 MILLIGRAM, QH
     Route: 042
     Dates: start: 20181118
  26. VANCOMYCIN [Suspect]
     Active Substance: VANCOMYCIN
     Indication: STAPHYLOCOCCAL INFECTION
     Dosage: 2 MILLIGRAM, QH
     Route: 042
     Dates: start: 20181119
  27. GENSULIN R [Suspect]
     Active Substance: INSULIN HUMAN
     Dosage: CONTINOUS INFUSION OF 12,5 UNITS OF INSULIN GIVEN WITH GLUCOSE (2X500 ML OF 10% GLUCOSE).
     Route: 042
     Dates: start: 20181116
  28. CLEXANE [Concomitant]
     Active Substance: ENOXAPARIN SODIUM
     Dosage: NO INFORMATION ON DOSAGE
     Route: 042
     Dates: start: 20181015, end: 20181115
  29. BETALOC                            /00376902/ [Concomitant]
     Active Substance: METOPROLOL TARTRATE
     Dosage: 200 MILLIGRAM, QD
     Route: 042
     Dates: start: 20181015, end: 20181015
  30. COSMOFER [Concomitant]
     Active Substance: IRON DEXTRAN
     Dosage: 1G/100 ML
     Route: 042
     Dates: start: 20181017, end: 20181019
  31. MEMOTROPIL [Concomitant]
     Active Substance: PIRACETAM
     Dosage: 2.4 GRAM, QD
     Route: 042
     Dates: start: 20181024, end: 20181115
  32. OXYNORM [Concomitant]
     Active Substance: OXYCODONE HYDROCHLORIDE
     Dosage: 2 MILLIGRAM, QH
     Route: 042
     Dates: start: 20181115, end: 20181120
  33. VANCOMYCIN [Suspect]
     Active Substance: VANCOMYCIN
     Dosage: 1.4 MILLIGRAM, QH
     Route: 042
     Dates: start: 20181124, end: 20181125
  34. GENSULIN R [Suspect]
     Active Substance: INSULIN HUMAN
     Dosage: CONTINOUS INFUSION  OF 2 UNITS/HOUR FOR 13 HOURS + 15 UNITS+15 UNITS (IN TOTAL, 56 UNITS A DAY  WERE
     Route: 042
     Dates: start: 20181124
  35. FUROSEMID                          /00032601/ [Concomitant]
     Active Substance: FUROSEMIDE
     Dosage: 5 MILLIGRAM, QH
     Route: 042
     Dates: start: 20181013, end: 20181023
  36. VIREGYT-K [Concomitant]
     Dosage: 50 MILLIGRAM, QD
     Route: 048
     Dates: start: 20181024, end: 20181114
  37. OXYNORM [Concomitant]
     Active Substance: OXYCODONE HYDROCHLORIDE
     Dosage: 2 MILLIGRAM, QH
     Route: 042
     Dates: start: 20181012, end: 20181018
  38. VANCOMYCIN [Suspect]
     Active Substance: VANCOMYCIN
     Indication: PROTEUS INFECTION
     Dosage: 4 MILLIGRAM, QH
     Route: 042
     Dates: start: 20181116, end: 20181117
  39. VANCOMYCIN [Suspect]
     Active Substance: VANCOMYCIN
     Dosage: 1.7 MILLIGRAM, QH
     Route: 042
     Dates: start: 20181120, end: 20181123
  40. MEROPENEM. [Concomitant]
     Active Substance: MEROPENEM
     Dosage: DOSE: 3G/DAY/300 ML
     Route: 042
     Dates: start: 20181014, end: 20181020
  41. IPP                                /00661201/ [Concomitant]
     Dosage: 80 MILLIGRAM, QD
     Route: 042
     Dates: start: 20181116, end: 20181125

REACTIONS (32)
  - Liver injury [Fatal]
  - Hypochromasia [Fatal]
  - Blood urea increased [Fatal]
  - Blood pressure decreased [Fatal]
  - Creatinine renal clearance decreased [Fatal]
  - Renal injury [Fatal]
  - Hypoxia [Fatal]
  - Hyperchloraemia [Fatal]
  - Hypoglycaemia [Fatal]
  - Oliguria [Fatal]
  - Blood creatinine increased [Fatal]
  - Intentional overdose [Unknown]
  - Haemoglobin decreased [Fatal]
  - Blood bilirubin increased [Fatal]
  - Red blood cell count decreased [Fatal]
  - Hyperkalaemia [Fatal]
  - Drug level above therapeutic [Fatal]
  - Tachycardia [Fatal]
  - Anisocytosis [Fatal]
  - Central nervous system injury [Fatal]
  - Thrombocytopenia [Fatal]
  - Acidosis [Fatal]
  - Loss of consciousness [Fatal]
  - Hepatitis fulminant [Fatal]
  - Splenic injury [Fatal]
  - Hypotonia [Fatal]
  - Petechiae [Fatal]
  - Tachyarrhythmia [Fatal]
  - Bradycardia [Fatal]
  - Haemolytic anaemia [Fatal]
  - Hyperaemia [Fatal]
  - Macrocytosis [Fatal]

NARRATIVE: CASE EVENT DATE: 20181017
